FAERS Safety Report 16765883 (Version 2)
Quarter: 2019Q3

REPORT INFORMATION
  Report Type: Report from Study
  Country: IL (occurrence: IL)
  Receive Date: 20190903
  Receipt Date: 20190923
  Transmission Date: 20191005
  Serious: Yes (Other)
  Sender: FDA-Public Use
  Company Number: IL-SA-2019SA240468

PATIENT
  Age: 70 Year
  Sex: Male

DRUGS (4)
  1. ATORVASTATIN [Concomitant]
     Active Substance: ATORVASTATIN
     Dosage: 40 MG, QD
  2. INSULIN GLARGINE/LIXISENATIDE [Suspect]
     Active Substance: INSULIN GLARGINE\LIXISENATIDE
     Dosage: 30 U, QD
     Route: 058
     Dates: start: 20190820, end: 20190821
  3. LOSARTAN. [Concomitant]
     Active Substance: LOSARTAN
     Dosage: 50(UNITS UNKNONW ), QD
  4. ACETYLSALICYLIC ACID [Concomitant]
     Active Substance: ASPIRIN
     Dosage: 100 MG, QD

REACTIONS (5)
  - Asthenia [Recovered/Resolved]
  - Feeling abnormal [Recovering/Resolving]
  - Adverse drug reaction [Recovered/Resolved]
  - Depressed level of consciousness [Recovered/Resolved]
  - Presyncope [Recovered/Resolved]

NARRATIVE: CASE EVENT DATE: 20190820
